FAERS Safety Report 23432978 (Version 2)
Quarter: 2024Q1

REPORT INFORMATION
  Report Type: Spontaneous
  Country: JP (occurrence: JP)
  Receive Date: 20240123
  Receipt Date: 20240208
  Transmission Date: 20240410
  Serious: Yes (Death, Hospitalization)
  Sender: FDA-Public Use
  Company Number: JP-BAUSCHBL-2024BNL000658

PATIENT
  Age: 62 Year
  Sex: Male

DRUGS (3)
  1. DEXAMETHASONE [Suspect]
     Active Substance: DEXAMETHASONE
     Indication: COVID-19
     Route: 065
  2. REMDESIVIR [Concomitant]
     Active Substance: REMDESIVIR
     Indication: COVID-19
     Route: 065
  3. OXYGEN [Concomitant]
     Active Substance: OXYGEN
     Indication: Oxygen therapy

REACTIONS (4)
  - Respiratory failure [Fatal]
  - Idiopathic pulmonary fibrosis [Not Recovered/Not Resolved]
  - Condition aggravated [Not Recovered/Not Resolved]
  - COVID-19 pneumonia [Not Recovered/Not Resolved]
